FAERS Safety Report 9351346 (Version 1)
Quarter: 2013Q2

REPORT INFORMATION
  Report Type: Spontaneous
  Country: US (occurrence: US)
  Receive Date: 20130617
  Receipt Date: 20130617
  Transmission Date: 20140414
  Serious: No
  Sender: FDA-Public Use
  Company Number: US-UPSHER-SMITH LABORATORIES, INC.-13001633

PATIENT
  Age: 81 Year
  Sex: Female

DRUGS (2)
  1. PACERONE (USL) [Suspect]
     Indication: ATRIAL FIBRILLATION
     Dosage: 200 MG, QD
     Dates: start: 20130122, end: 20130404
  2. METOPROLOL [Concomitant]
     Dosage: UNK

REACTIONS (2)
  - Photosensitivity reaction [Not Recovered/Not Resolved]
  - Liver function test abnormal [Unknown]
